FAERS Safety Report 8159739-7 (Version None)
Quarter: 2012Q1

REPORT INFORMATION
  Report Type: 
  Country: None (occurrence: None)
  Receive Date: 20120223
  Receipt Date: 20120217
  Transmission Date: 20120608
  Serious: Yes (Hospitalization, Other)
  Sender: FDA-Public Use
  Company Number: US-BAYER-2011-045220

PATIENT
  Age: 45 Year
  Sex: Female
  Weight: 85.261 kg

DRUGS (14)
  1. IBUPROFEN [Concomitant]
     Dosage: 400 MG, QID
  2. CLONIDINE [Concomitant]
     Dosage: 0.1 MG, BID
  3. IRON SULFATETHIAMIN COMPOUND TAB [Concomitant]
     Dosage: 648 MG, BID
  4. WARFARIN SODIUM [Concomitant]
     Dosage: 6 MG, HS
  5. TRIAMTERENE AND HYDROCHLOROTHIAZIDE [Concomitant]
     Dosage: UNK UNK, QD
  6. GEMFIBROZIL [Concomitant]
     Dosage: 500 MG, BID
  7. CLONAZEPAM [Concomitant]
     Dosage: 1 MG, QD
  8. GLYBURIDE [Concomitant]
     Dosage: 5 MG, BID
  9. HYDROXYZINE [Concomitant]
     Dosage: 50 MG, BID
  10. DROSPIRENONE AND ETHINYL ESTRADIOL [Suspect]
     Indication: MENSTRUAL CYCLE MANAGEMENT
  11. SIMVASTATIN [Concomitant]
     Dosage: 20 MG, HS
  12. ATENOLOL [Concomitant]
     Dosage: 50 MG, BID
  13. DROSPIRENONE AND ETHINYL ESTRADIOL [Suspect]
     Indication: CONTRACEPTION
     Dosage: UNK
     Dates: start: 20090701, end: 20090901
  14. METFORMIN HCL [Concomitant]
     Dosage: 500 MG, TID

REACTIONS (8)
  - PAIN [None]
  - ANXIETY [None]
  - PULMONARY EMBOLISM [None]
  - INJURY [None]
  - FEAR [None]
  - ANHEDONIA [None]
  - DEEP VEIN THROMBOSIS [None]
  - DEPRESSION [None]
